FAERS Safety Report 9036215 (Version 1)
Quarter: 2013Q1

REPORT INFORMATION
  Report Type: Spontaneous
  Country: TR (occurrence: None)
  Receive Date: 20130114
  Receipt Date: 20130114
  Transmission Date: 20140127
  Serious: Yes (Other)
  Sender: FDA-Public Use
  Company Number: 2013P1000122

PATIENT
  Age: 6 Year
  Sex: Male

DRUGS (1)
  1. VANCOMYCIN [Suspect]
     Indication: PROTEUS INFECTION

REACTIONS (5)
  - Incorrect dose administered [None]
  - Abdominal pain [None]
  - Kidney enlargement [None]
  - Renal tubular necrosis [None]
  - Tubulointerstitial nephritis [None]
